FAERS Safety Report 4914442-9 (Version None)
Quarter: 2006Q1

REPORT INFORMATION
  Report Type: 
  Country: None (occurrence: None)
  Receive Date: 20060113
  Receipt Date: 20051012
  Transmission Date: 20060701
  Serious: No
  Sender: FDA-Public Use
  Company Number: 2005SP002296

PATIENT
  Age: 41 Year
  Sex: Female
  Weight: 49.8957 kg

DRUGS (2)
  1. LUNESTA [Suspect]
     Indication: INSOMNIA
     Dosage: 2 MG;PRN;ORAL
     Route: 048
     Dates: start: 20050412, end: 20050423
  2. VITAMINS [Concomitant]

REACTIONS (5)
  - BACK PAIN [None]
  - BLEPHAROSPASM [None]
  - DYSGEUSIA [None]
  - EYE IRRITATION [None]
  - OCULAR HYPERAEMIA [None]
